FAERS Safety Report 20920287 (Version 1)
Quarter: 2022Q2

REPORT INFORMATION
  Report Type: Spontaneous
  Country: US (occurrence: None)
  Receive Date: 20220606
  Receipt Date: 20220606
  Transmission Date: 20220721
  Serious: Yes (Hospitalization)
  Sender: FDA-Public Use
  Company Number: None

PATIENT
  Age: 66 Year
  Sex: Male

DRUGS (1)
  1. SEMAGLUTIDE [Suspect]
     Active Substance: SEMAGLUTIDE
     Indication: Diabetes mellitus
     Dosage: 1 MG QWEEK SQ?
     Route: 058
     Dates: start: 20210217, end: 20220406

REACTIONS (2)
  - Pancreatitis acute [None]
  - Hepatic steatosis [None]

NARRATIVE: CASE EVENT DATE: 20220323
